FAERS Safety Report 10976885 (Version 1)
Quarter: 2015Q2

REPORT INFORMATION
  Report Type: Spontaneous
  Country: CH (occurrence: CH)
  Receive Date: 20150401
  Receipt Date: 20150401
  Transmission Date: 20150821
  Serious: Yes (Life-Threatening, Hospitalization)
  Sender: FDA-Public Use
  Company Number: PHHY2015CH036631

PATIENT
  Age: 51 Year
  Sex: Female
  Weight: 90 kg

DRUGS (6)
  1. ATRACURIUM BESILATE [Suspect]
     Active Substance: ATRACURIUM BESYLATE
     Indication: INDUCTION OF ANAESTHESIA
     Dosage: 50 MG, UNK
     Route: 065
  2. SUFENTANIL [Concomitant]
     Active Substance: SUFENTANIL
     Indication: INDUCTION OF ANAESTHESIA
     Dosage: 20 UG, UNK
     Route: 065
  3. CLONIDINE. [Concomitant]
     Active Substance: CLONIDINE
     Indication: PREMEDICATION
     Route: 065
  4. MIDAZOLAM [Concomitant]
     Active Substance: MIDAZOLAM\MIDAZOLAM HYDROCHLORIDE
     Indication: INDUCTION OF ANAESTHESIA
     Dosage: 3 MG, UNK
     Route: 065
  5. CISATRACURIUM BESYLATE. [Suspect]
     Active Substance: CISATRACURIUM BESYLATE
     Indication: PRODUCT USED FOR UNKNOWN INDICATION
     Route: 065
  6. PROPOFOL. [Concomitant]
     Active Substance: PROPOFOL
     Indication: INDUCTION OF ANAESTHESIA
     Dosage: 40 MG PER 10S
     Route: 041

REACTIONS (19)
  - Localised oedema [Unknown]
  - Pharyngeal oedema [Unknown]
  - Conjunctival oedema [Unknown]
  - Erythema [Unknown]
  - Eyelid oedema [Unknown]
  - Blood pressure decreased [Unknown]
  - Bronchospasm [Unknown]
  - Hypoxia [Recovering/Resolving]
  - Anaphylactic reaction [Unknown]
  - Face oedema [Unknown]
  - Respiratory arrest [Unknown]
  - Tremor [Recovered/Resolved]
  - Coma [Recovering/Resolving]
  - Drug hypersensitivity [Unknown]
  - Bronchial oedema [Unknown]
  - Hemiparesis [Recovered/Resolved]
  - Cyanosis [Recovered/Resolved]
  - Oxygen saturation decreased [Recovering/Resolving]
  - Local reaction [Unknown]
